FAERS Safety Report 8605526-2 (Version None)
Quarter: 2012Q3

REPORT INFORMATION
  Report Type: 
  Country: None (occurrence: None)
  Receive Date: 20120820
  Receipt Date: 20120809
  Transmission Date: 20120928
  Serious: Yes (Death, Hospitalization)
  Sender: FDA-Public Use
  Company Number: JP-TEVA-2011003988

PATIENT
  Sex: Male
  Weight: 59 kg

DRUGS (7)
  1. DEXAMETHASONE SODIUM PHOSPHATE [Concomitant]
     Dates: start: 20110526, end: 20110527
  2. RITUXIMAB [Concomitant]
  3. BENDAMUSTINE HYDROCHLORIDE [Suspect]
     Indication: B-CELL LYMPHOMA
     Route: 042
     Dates: start: 20110526, end: 20110527
  4. BENDAMUSTINE HYDROCHLORIDE [Suspect]
     Dosage: 187.5 MILLIGRAM DAILY;
     Route: 042
     Dates: start: 20110626, end: 20110627
  5. CHLORPHENIRAMINE MALEATE [Concomitant]
     Dates: start: 20110527, end: 20110527
  6. GRANISETRON HYDROCHLORIDE [Concomitant]
  7. HYDROCORTISONE SODIUM SUCCINATE [Concomitant]

REACTIONS (5)
  - HERPES ZOSTER [None]
  - CARDIAC FAILURE [None]
  - CARDIO-RESPIRATORY ARREST [None]
  - NEUTROPHIL COUNT DECREASED [None]
  - ANGIOPATHY [None]
